FAERS Safety Report 20083280 (Version 1)
Quarter: 2021Q4

REPORT INFORMATION
  Report Type: Spontaneous
  Country: CN (occurrence: CN)
  Receive Date: 20211117
  Receipt Date: 20211117
  Transmission Date: 20220303
  Serious: Yes (Hospitalization, Other)
  Sender: FDA-Public Use
  Company Number: CN-BRISTOL-MYERS SQUIBB COMPANY-BMS-2021-122170

PATIENT
  Age: 23 Year
  Sex: Male

DRUGS (19)
  1. ABATACEPT [Suspect]
     Active Substance: ABATACEPT
     Indication: Acute myeloid leukaemia
     Dosage: 250MG, QD (125 MILLIGRAM 2 VIALS/TIME)
     Route: 058
     Dates: start: 20210912, end: 20210912
  2. ABATACEPT [Suspect]
     Active Substance: ABATACEPT
     Indication: Acute myeloid leukaemia
     Dosage: 250MG, QD (125 MILLIGRAM 2 VIALS/TIME)
     Route: 058
     Dates: start: 20210912, end: 20210912
  3. ABATACEPT [Suspect]
     Active Substance: ABATACEPT
     Indication: Prophylaxis against graft versus host disease
     Dosage: 125 MILLIGRAM, QD
     Route: 058
     Dates: start: 20210918, end: 20210918
  4. ABATACEPT [Suspect]
     Active Substance: ABATACEPT
     Indication: Prophylaxis against graft versus host disease
     Dosage: 125 MILLIGRAM, QD
     Route: 058
     Dates: start: 20210918, end: 20210918
  5. ABATACEPT [Suspect]
     Active Substance: ABATACEPT
     Dosage: 125 MILLIGRAM, QD
     Route: 058
     Dates: start: 20210927, end: 20210927
  6. ABATACEPT [Suspect]
     Active Substance: ABATACEPT
     Dosage: 125 MILLIGRAM, QD
     Route: 058
     Dates: start: 20210927, end: 20210927
  7. ABATACEPT [Suspect]
     Active Substance: ABATACEPT
     Dosage: 125 MILLIGRAM, QD
     Route: 058
     Dates: start: 20211004, end: 20211004
  8. ABATACEPT [Suspect]
     Active Substance: ABATACEPT
     Dosage: 125 MILLIGRAM, QD
     Route: 058
     Dates: start: 20211004, end: 20211004
  9. ABATACEPT [Suspect]
     Active Substance: ABATACEPT
     Dosage: 125 MILLIGRAM, QD
     Route: 058
     Dates: start: 20211011, end: 20211011
  10. ABATACEPT [Suspect]
     Active Substance: ABATACEPT
     Dosage: 125 MILLIGRAM, QD
     Route: 058
     Dates: start: 20211011, end: 20211011
  11. ABATACEPT [Suspect]
     Active Substance: ABATACEPT
     Dosage: 125 MILLIGRAM, QD
     Route: 058
     Dates: start: 20211018, end: 20211018
  12. ABATACEPT [Suspect]
     Active Substance: ABATACEPT
     Dosage: 125 MILLIGRAM, QD
     Route: 058
     Dates: start: 20211018, end: 20211018
  13. ABATACEPT [Suspect]
     Active Substance: ABATACEPT
     Dosage: 125 MILLIGRAM, QD
     Route: 058
     Dates: start: 20211025, end: 20211025
  14. ABATACEPT [Suspect]
     Active Substance: ABATACEPT
     Dosage: 125 MILLIGRAM, QD
     Route: 058
     Dates: start: 20211025, end: 20211025
  15. ABATACEPT [Suspect]
     Active Substance: ABATACEPT
     Dosage: 125 MILLIGRAM, QD
     Route: 058
     Dates: start: 20211101, end: 20211101
  16. ABATACEPT [Suspect]
     Active Substance: ABATACEPT
     Dosage: 125 MILLIGRAM, QD
     Route: 058
     Dates: start: 20211101, end: 20211101
  17. ABATACEPT [Suspect]
     Active Substance: ABATACEPT
     Dosage: 125 MILLIGRAM, QD
     Route: 058
     Dates: start: 20211108, end: 20211108
  18. ABATACEPT [Suspect]
     Active Substance: ABATACEPT
     Dosage: 125 MILLIGRAM, QD
     Route: 058
     Dates: start: 20211108, end: 20211108
  19. AZACITIDINE [Concomitant]
     Active Substance: AZACITIDINE
     Indication: Product used for unknown indication
     Dosage: 50 MILLIGRAM, QD
     Route: 065
     Dates: start: 20211022, end: 20211026

REACTIONS (2)
  - Cystitis haemorrhagic [Not Recovered/Not Resolved]
  - Intentional product use issue [Unknown]

NARRATIVE: CASE EVENT DATE: 20211001
